FAERS Safety Report 5700616-6 (Version None)
Quarter: 2008Q2

REPORT INFORMATION
  Report Type: 
  Country: None (occurrence: None)
  Receive Date: 20080409
  Receipt Date: 20080409
  Transmission Date: 20081010
  Serious: Yes (Other)
  Sender: FDA-Public Use
  Company Number: None

PATIENT
  Age: 92 Year
  Sex: Male
  Weight: 84.8226 kg

DRUGS (1)
  1. VANCOMYCIN [Suspect]
     Indication: WOUND INFECTION
     Dosage: 1500MG IV Q24
     Route: 042
     Dates: start: 20080321, end: 20080328

REACTIONS (2)
  - PRURITUS [None]
  - RASH ERYTHEMATOUS [None]
